FAERS Safety Report 8310291 (Version 2)
Quarter: 2016Q3

REPORT INFORMATION
  Report Type: Report from Study
  Country: US (occurrence: US)
  Receive Date: 20111223
  Receipt Date: 20160916
  Transmission Date: 20161109
  Serious: Yes (Hospitalization, Other)
  Sender: FDA-Public Use
  Company Number: US-ROCHE-1023582

PATIENT
  Age: 75 Year
  Sex: Male
  Weight: 77.4 kg

DRUGS (7)
  1. TEMSIROLIMUS [Suspect]
     Active Substance: TEMSIROLIMUS
     Route: 042
     Dates: start: 20100909
  2. BEVACIZUMAB [Suspect]
     Active Substance: BEVACIZUMAB
     Route: 042
     Dates: start: 20100812
  3. BEVACIZUMAB [Suspect]
     Active Substance: BEVACIZUMAB
     Route: 042
     Dates: start: 20101103
  4. BEVACIZUMAB [Suspect]
     Active Substance: BEVACIZUMAB
     Indication: HEPATOCELLULAR CARCINOMA
     Dosage: OVER 30-90 MIN ON DAY1 AND DAY15 EVERY 28 DAYS?ALSO RECEIVED ON 07/OCT/2010, 02/DEC/2010, 29/DEC/201
     Route: 042
     Dates: start: 20100708
  5. TEMSIROLIMUS [Suspect]
     Active Substance: TEMSIROLIMUS
     Indication: HEPATOCELLULAR CARCINOMA
     Dosage: OVER 30-90 MINUTES ON DAYS 1,8, 15, 22 EVERY 28 DAYS?ALSO RECIEVED ON 12/AUG/2010
     Route: 042
     Dates: start: 20100708
  6. BEVACIZUMAB [Suspect]
     Active Substance: BEVACIZUMAB
     Route: 042
     Dates: start: 20100909
  7. BEVACIZUMAB [Suspect]
     Active Substance: BEVACIZUMAB
     Dosage: ALSO RECIEVED ON 14/JUL/2011, 11/AUG/2011, 08/SEP/2011, 06/OCT/2011 AND 17/NOV/2011
     Route: 042
     Dates: start: 20110616

REACTIONS (14)
  - Back pain [Recovered/Resolved]
  - Confusional state [Recovered/Resolved]
  - Atrioventricular block complete [Unknown]
  - Neutrophil count decreased [Unknown]
  - Lymphocyte count decreased [Unknown]
  - Urinary incontinence [Unknown]
  - Back pain [Unknown]
  - Urinary tract infection [Recovered/Resolved]
  - White blood cell count decreased [Unknown]
  - Urinary tract infection [Unknown]
  - Leukoencephalopathy [Unknown]
  - Mouth haemorrhage [Unknown]
  - Dehydration [Unknown]
  - Platelet count decreased [Unknown]

NARRATIVE: CASE EVENT DATE: 20111018
